FAERS Safety Report 5063441-8 (Version None)
Quarter: 2006Q3

REPORT INFORMATION
  Report Type: 
  Country: None (occurrence: None)
  Receive Date: 20060727
  Receipt Date: 20051213
  Transmission Date: 20061208
  Serious: Yes (Hospitalization, Other)
  Sender: FDA-Public Use
  Company Number: US-GLAXOSMITHKLINE-A0585775A

PATIENT
  Age: 17 Year
  Sex: Female
  Weight: 50.9 kg

DRUGS (3)
  1. PAXIL CR [Suspect]
     Indication: ANXIETY
     Route: 048
     Dates: start: 20021115, end: 20030123
  2. ZOLOFT [Concomitant]
  3. SYNTHROID [Concomitant]

REACTIONS (23)
  - ABNORMAL BEHAVIOUR [None]
  - AGITATION [None]
  - AKATHISIA [None]
  - ANXIETY [None]
  - CRYING [None]
  - DEPERSONALISATION [None]
  - DEPRESSION [None]
  - DISTURBANCE IN ATTENTION [None]
  - EMOTIONAL DISTRESS [None]
  - FEELING OF DESPAIR [None]
  - FLAT AFFECT [None]
  - HYPERSOMNIA [None]
  - LEGAL PROBLEM [None]
  - MOOD ALTERED [None]
  - NERVOUSNESS [None]
  - NIGHTMARE [None]
  - SELF MUTILATION [None]
  - SOCIAL AVOIDANT BEHAVIOUR [None]
  - SUICIDAL IDEATION [None]
  - SUICIDE ATTEMPT [None]
  - TREATMENT NONCOMPLIANCE [None]
  - TREMOR [None]
  - WEIGHT DECREASED [None]
